FAERS Safety Report 4313821-0 (Version None)
Quarter: 2004Q1

REPORT INFORMATION
  Report Type: 
  Country: None (occurrence: None)
  Receive Date: 20040305
  Receipt Date: 20040226
  Transmission Date: 20041129
  Serious: Yes (Hospitalization)
  Sender: FDA-Public Use
  Company Number: K200400270

PATIENT
  Age: 51 Year
  Sex: Female

DRUGS (17)
  1. ALTACE [Suspect]
     Indication: ESSENTIAL HYPERTENSION
     Dosage: 10 MG, QD, ORAL
     Route: 048
     Dates: end: 20030723
  2. PROTHIADEN [Suspect]
     Indication: DYSTHYMIC DISORDER
     Dosage: 75 MG, QD, ORAL
     Route: 048
     Dates: end: 20030723
  3. GLUCOPHAGE [Suspect]
     Dosage: 850 MG, BID, ORAL
     Route: 048
     Dates: end: 20030723
  4. TAHOR (ATORVASTATIN CALCIUM) 10 MG [Suspect]
     Dosage: 10 MG, QD, ORAL
     Route: 048
     Dates: end: 20030723
  5. LOXAPAC (LOXAPINE SUCCINATE) 150 MG [Suspect]
     Dosage: 50 MG, TID, ORAL
     Route: 048
     Dates: end: 20030723
  6. DEPAMIDE (VALPROMIDE) TABLET, 300 MG [Suspect]
     Dosage: 300 MG, TID, ORAL
     Route: 048
     Dates: end: 20030723
  7. ATARAX [Concomitant]
  8. LORAZEPAM [Concomitant]
  9. PRAZINIL (CARPIPRAMINE DIHYDROCHLORIDE) [Concomitant]
  10. ACETAMINOPHEN [Concomitant]
  11. POLYSIL.ANE (DIM ETICONE) [Concomitant]
  12. LEPTICUR (TROPATEPINE HYDROCHLORIDE) [Concomitant]
  13. XENICAL [Concomitant]
  14. VASTAREL                (TRIMETAZIDINE HYDROCHLORIDE) [Concomitant]
  15. PEVARYL (ECONAZOLE NITRATE) [Concomitant]
  16. FUNGIZONE [Concomitant]
  17. MEPRONIZINE (ACEPROMETAZINE, MEPROBAMATE) [Concomitant]

REACTIONS (7)
  - DIALYSIS [None]
  - HYPERGLYCAEMIA [None]
  - HYPOTENSION [None]
  - LACTIC ACIDOSIS [None]
  - RENAL FAILURE [None]
  - SEPTIC SHOCK [None]
  - TACHYPNOEA [None]
